FAERS Safety Report 8222054-7 (Version None)
Quarter: 2012Q1

REPORT INFORMATION
  Report Type: 
  Country: None (occurrence: None)
  Receive Date: 20120320
  Receipt Date: 20120311
  Transmission Date: 20120608
  Serious: Yes (Other)
  Sender: FDA-Public Use
  Company Number: AR-JNJFOC-20120305677

PATIENT
  Age: 66 Year
  Sex: Male
  Weight: 109 kg

DRUGS (4)
  1. VALSARTAN [Concomitant]
  2. ATORVASTATIN CALCIUM [Concomitant]
  3. STELARA [Suspect]
     Indication: PRODUCT USED FOR UNKNOWN INDICATION
     Route: 058
  4. CEFALOTIN [Concomitant]

REACTIONS (1)
  - ARTERIAL THROMBOSIS LIMB [None]
